FAERS Safety Report 9276241 (Version 1)
Quarter: 2013Q2

REPORT INFORMATION
  Report Type: Spontaneous
  Country: US (occurrence: US)
  Receive Date: 20130507
  Receipt Date: 20130507
  Transmission Date: 20140414
  Serious: Yes (Hospitalization)
  Sender: FDA-Public Use
  Company Number: US-JNJFOC-20130416443

PATIENT
  Sex: Female

DRUGS (3)
  1. XARELTO [Suspect]
     Indication: DEEP VEIN THROMBOSIS
     Route: 065
  2. XARELTO [Suspect]
     Indication: DEEP VEIN THROMBOSIS
     Route: 065
  3. XARELTO [Suspect]
     Indication: DEEP VEIN THROMBOSIS
     Route: 065

REACTIONS (1)
  - Hospitalisation [Recovered/Resolved]
